FAERS Safety Report 15952981 (Version 3)
Quarter: 2019Q2

REPORT INFORMATION
  Report Type: Spontaneous
  Country: US (occurrence: US)
  Receive Date: 20190211
  Receipt Date: 20190408
  Transmission Date: 20190711
  Serious: Yes (Death, Other)
  Sender: FDA-Public Use
  Company Number: US-ASTRAZENECA-2019SE10431

PATIENT
  Age: 27282 Day
  Sex: Female

DRUGS (16)
  1. POTASSIUM [Concomitant]
     Active Substance: POTASSIUM
  2. CELEXA [Concomitant]
     Active Substance: CITALOPRAM HYDROBROMIDE
  3. ALLOPURINOL. [Concomitant]
     Active Substance: ALLOPURINOL
  4. ZOFRAN [Concomitant]
     Active Substance: ONDANSETRON HYDROCHLORIDE
  5. PRILOSEC [Suspect]
     Active Substance: OMEPRAZOLE MAGNESIUM
     Route: 048
  6. TORSEMIDE. [Concomitant]
     Active Substance: TORSEMIDE
  7. NEURONTIN [Concomitant]
     Active Substance: GABAPENTIN
  8. LISINOPRIL. [Concomitant]
     Active Substance: LISINOPRIL
  9. NEXIUM [Suspect]
     Active Substance: ESOMEPRAZOLE MAGNESIUM
     Route: 048
     Dates: start: 20140803
  10. ZYRTEC [Concomitant]
     Active Substance: CETIRIZINE HYDROCHLORIDE
  11. NORCO [Concomitant]
     Active Substance: ACETAMINOPHEN\HYDROCODONE BITARTRATE
  12. COREG [Concomitant]
     Active Substance: CARVEDILOL
  13. SIMVASTATIN. [Concomitant]
     Active Substance: SIMVASTATIN
  14. PLAVIX [Concomitant]
     Active Substance: CLOPIDOGREL BISULFATE
  15. AMBIEN [Concomitant]
     Active Substance: ZOLPIDEM TARTRATE
  16. XANAX [Concomitant]
     Active Substance: ALPRAZOLAM

REACTIONS (7)
  - Renal impairment [Unknown]
  - Cardiac failure congestive [Fatal]
  - Coronary artery disease [Fatal]
  - Acute kidney injury [Unknown]
  - End stage renal disease [Fatal]
  - Renal failure [Unknown]
  - Rebound acid hypersecretion [Not Recovered/Not Resolved]

NARRATIVE: CASE EVENT DATE: 20140909
